FAERS Safety Report 9559440 (Version 1)
Quarter: 2013Q3

REPORT INFORMATION
  Report Type: Spontaneous
  Country: US (occurrence: US)
  Receive Date: 20130927
  Receipt Date: 20130927
  Transmission Date: 20140515
  Serious: Yes (Hospitalization)
  Sender: FDA-Public Use
  Company Number: US-ELI_LILLY_AND_COMPANY-US201309006239

PATIENT
  Sex: Male

DRUGS (1)
  1. DULOXETINE HYDROCHLORIDE [Suspect]
     Indication: DEPRESSION
     Dosage: 120 MG, QD
     Route: 065
     Dates: start: 201109, end: 201309

REACTIONS (4)
  - Depression [Unknown]
  - Suicidal ideation [Unknown]
  - Lethargy [Unknown]
  - Asthenia [Unknown]
